FAERS Safety Report 11701431 (Version 2)
Quarter: 2015Q4

REPORT INFORMATION
  Report Type: Report from Study
  Country: BR (occurrence: BR)
  Receive Date: 20151105
  Receipt Date: 20151204
  Transmission Date: 20160304
  Serious: Yes (Hospitalization, Other)
  Sender: FDA-Public Use
  Company Number: BR-ABBVIE-15K-020-1493531-00

PATIENT
  Age: 59 Year
  Sex: Female
  Weight: 54 kg

DRUGS (10)
  1. HUMIRA [Suspect]
     Active Substance: ADALIMUMAB
     Route: 058
     Dates: start: 2015, end: 20151015
  2. OMEPRAZOLE. [Concomitant]
     Active Substance: OMEPRAZOLE
     Indication: ABDOMINAL PAIN UPPER
     Route: 048
     Dates: start: 201505
  3. BUSCOPAN COMPOSTO [Concomitant]
     Indication: PAIN
     Route: 048
     Dates: start: 201504
  4. DIPYRONE [Concomitant]
     Active Substance: DIPYRONE
     Indication: ABDOMINAL PAIN
  5. HUMIRA [Suspect]
     Active Substance: ADALIMUMAB
     Indication: COLITIS ULCERATIVE
     Route: 058
     Dates: start: 20150813, end: 20150813
  6. DIPYRONE [Concomitant]
     Active Substance: DIPYRONE
     Indication: PAIN
     Route: 048
  7. DIPYRONE [Concomitant]
     Active Substance: DIPYRONE
     Indication: PYREXIA
  8. NORIPURUM [Suspect]
     Active Substance: IRON POLYMALTOSE
     Indication: ANAEMIA
     Route: 042
     Dates: start: 20151016
  9. CLONAZEPAM. [Concomitant]
     Active Substance: CLONAZEPAM
     Indication: SEDATIVE THERAPY
     Route: 048
     Dates: start: 2014
  10. MESALAZINE [Concomitant]
     Active Substance: MESALAMINE
     Indication: COLITIS
     Route: 048

REACTIONS (13)
  - Hospitalisation [Unknown]
  - Gingivitis [Recovered/Resolved]
  - Swelling [Unknown]
  - Pyrexia [Not Recovered/Not Resolved]
  - Muscle spasms [Unknown]
  - Anaemia [Recovering/Resolving]
  - Tooth infection [Not Recovered/Not Resolved]
  - Kidney infection [Recovered/Resolved]
  - Thrombosis [Not Recovered/Not Resolved]
  - Diarrhoea [Not Recovered/Not Resolved]
  - Pain in extremity [Unknown]
  - Toothache [Not Recovered/Not Resolved]
  - Peripheral swelling [Not Recovered/Not Resolved]

NARRATIVE: CASE EVENT DATE: 2015
